FAERS Safety Report 6125120-5 (Version None)
Quarter: 2009Q1

REPORT INFORMATION
  Report Type: 
  Country: None (occurrence: None)
  Receive Date: 20090318
  Receipt Date: 20090311
  Transmission Date: 20090719
  Serious: Yes (Disabling)
  Sender: FDA-Public Use
  Company Number: APP200801248

PATIENT
  Age: 28 Year
  Sex: Female

DRUGS (2)
  1. MARCAINE [Suspect]
     Indication: MUSCULOSKELETAL PAIN
     Dosage: 100 ML, 0.5%, 2 ML/HR, CONTINUOUS OVER 4-5 DAYS, INTRA-ARTICULAR
     Route: 014
     Dates: start: 20060203
  2. I-FLOW ON-Q PAINBUSTER PAIN PUMP [Suspect]
     Indication: MUSCULOSKELETAL PAIN
     Dates: start: 20060203

REACTIONS (3)
  - CHONDROLYSIS [None]
  - CHONDROMALACIA [None]
  - MUSCULOSKELETAL PAIN [None]
